FAERS Safety Report 9492406 (Version 3)
Quarter: 2013Q3

REPORT INFORMATION
  Report Type: Spontaneous
  Country: CY (occurrence: CY)
  Receive Date: 20130830
  Receipt Date: 20130924
  Transmission Date: 20140515
  Serious: Yes (Disabling, Other)
  Sender: FDA-Public Use
  Company Number: CY-BRISTOL-MYERS SQUIBB COMPANY-19207968

PATIENT
  Age: 43 Year
  Sex: Male
  Weight: 80 kg

DRUGS (5)
  1. YERVOY [Suspect]
     Indication: MALIGNANT MELANOMA
     Dosage: SALAVAGE THERAPY (3RD LINE)?22JUN,13JUL,03AUG,24AUG12
     Route: 042
     Dates: start: 20120622
  2. LOSARTAN [Concomitant]
  3. METFORMIN [Concomitant]
     Route: 048
  4. ATORVASTATIN [Concomitant]
     Route: 048
  5. ZOLEDRONIC ACID [Concomitant]
     Route: 042
     Dates: start: 201207

REACTIONS (3)
  - Oscillopsia [Unknown]
  - Nystagmus [Unknown]
  - Gait disturbance [Unknown]
